FAERS Safety Report 7219481 (Version 2)
Quarter: 2012Q4

REPORT INFORMATION
  Report Type: 
  Country: MX (occurrence: MX)
  Receive Date: 20091216
  Receipt Date: 20120903
  Transmission Date: 20130627
  Serious: Yes (Other)
  Sender: FDA-Public Use
  Company Number: PHHY2009MX55172

PATIENT
  Age: 29 None
  Sex: Male

DRUGS (1)
  1. TEGRETOL [Suspect]
     Indication: EPILEPSY
     Dosage: 3 DF, Daily
     Route: 048
     Dates: start: 200809, end: 201206

REACTIONS (3)
  - Fall [Recovered/Resolved]
  - Head injury [Recovered/Resolved]
  - Convulsion [Recovered/Resolved]
